FAERS Safety Report 8320383-X (Version None)
Quarter: 2012Q2

REPORT INFORMATION
  Report Type: 
  Country: None (occurrence: None)
  Receive Date: 20120426
  Receipt Date: 20120426
  Transmission Date: 20120825
  Serious: Yes (Other)
  Sender: FDA-Public Use
  Company Number: None

PATIENT
  Sex: Male
  Weight: 114.3065 kg

DRUGS (2)
  1. ATIVAN [Suspect]
     Dosage: ATIVAN .05 MG 1 PILL 3X DAY AS NEEDED ORAL
     Route: 048
     Dates: start: 20120325
  2. GABAPENTIN [Suspect]
     Dosage: 300 MG CAP  1 CAP 2X DAY ORAL
     Route: 048
     Dates: start: 20120320

REACTIONS (4)
  - FATIGUE [None]
  - ASTHENIA [None]
  - COORDINATION ABNORMAL [None]
  - DISTURBANCE IN ATTENTION [None]
